FAERS Safety Report 15644320 (Version 2)
Quarter: 2019Q1

REPORT INFORMATION
  Report Type: Spontaneous
  Country: US (occurrence: US)
  Receive Date: 20181121
  Receipt Date: 20190315
  Transmission Date: 20190417
  Serious: No
  Sender: FDA-Public Use
  Company Number: US-ASTRAZENECA-2018SF40490

PATIENT
  Age: 62 Year
  Sex: Male
  Weight: 93 kg

DRUGS (4)
  1. BYDUREON [Suspect]
     Active Substance: EXENATIDE
     Indication: TYPE 2 DIABETES MELLITUS
     Route: 058
     Dates: start: 201801, end: 201804
  2. METFORMIN [Concomitant]
     Active Substance: METFORMIN HYDROCHLORIDE
     Indication: TYPE 2 DIABETES MELLITUS
     Dosage: 1000 MG 1.5 IN AM AND 1 IN THE EVENING (3 YEARS)
     Route: 048
  3. BYDUREON BCISE [Suspect]
     Active Substance: EXENATIDE
     Indication: TYPE 2 DIABETES MELLITUS
     Route: 058
     Dates: start: 2018
  4. LISINOPRIL. [Concomitant]
     Active Substance: LISINOPRIL
     Indication: TYPE 2 DIABETES MELLITUS
     Route: 048

REACTIONS (6)
  - Injection site mass [Recovered/Resolved]
  - Circumstance or information capable of leading to medication error [Unknown]
  - Wrong technique in device usage process [Unknown]
  - Device leakage [Unknown]
  - Intentional device misuse [Unknown]
  - Device malfunction [Unknown]

NARRATIVE: CASE EVENT DATE: 2016
